FAERS Safety Report 8792366 (Version 2)
Quarter: 2015Q1

REPORT INFORMATION
  Report Type: Report from Study
  Country: US (occurrence: US)
  Receive Date: 20120917
  Receipt Date: 20150225
  Transmission Date: 20150721
  Serious: Yes (Death)
  Sender: FDA-Public Use
  Company Number: US-ROCHE-1124628

PATIENT
  Age: 48 Year
  Sex: Female

DRUGS (11)
  1. TAGAMET [Concomitant]
     Active Substance: CIMETIDINE
     Route: 042
  2. AVASTIN [Suspect]
     Active Substance: BEVACIZUMAB
     Indication: LUNG NEOPLASM MALIGNANT
     Dosage: SHE HAD RECEIVED ONE DOSE OF AVASTIN ON 11/JULY/2009
     Route: 042
     Dates: start: 20090330
  3. GEMZAR [Concomitant]
     Active Substance: GEMCITABINE HYDROCHLORIDE
     Route: 042
  4. MS CONTIN [Concomitant]
     Active Substance: MORPHINE SULFATE
     Dosage: 15 MG BID TO TID
     Route: 065
  5. ATIVAN [Concomitant]
     Active Substance: LORAZEPAM
  6. PRILOSEC [Concomitant]
     Active Substance: OMEPRAZOLE MAGNESIUM
  7. GRANISETRON [Concomitant]
     Active Substance: GRANISETRON
  8. ARANESP [Concomitant]
     Active Substance: DARBEPOETIN ALFA
     Route: 042
  9. DECADRON [Concomitant]
     Active Substance: DEXAMETHASONE
     Route: 042
  10. NEUPOGEN [Concomitant]
     Active Substance: FILGRASTIM
     Route: 065
  11. DEXAMETHASONE. [Concomitant]
     Active Substance: DEXAMETHASONE

REACTIONS (9)
  - Disease progression [Fatal]
  - Petechiae [Recovered/Resolved]
  - Ocular icterus [Unknown]
  - Nausea [Unknown]
  - Skin mass [Unknown]
  - Gastrooesophageal reflux disease [Unknown]
  - Musculoskeletal discomfort [Unknown]
  - Hyponatraemia [Unknown]
  - Haemorrhage [Unknown]

NARRATIVE: CASE EVENT DATE: 20090810
